FAERS Safety Report 7719146-5 (Version None)
Quarter: 2011Q3

REPORT INFORMATION
  Report Type: 
  Country: None (occurrence: None)
  Receive Date: 20110830
  Receipt Date: 20110823
  Transmission Date: 20111222
  Serious: Yes (Other)
  Sender: FDA-Public Use
  Company Number: CA-TEVA-298089USA

PATIENT

DRUGS (2)
  1. DOXORUBICIN HCL [Suspect]
  2. CYCLOPHOSPHAMIDE [Suspect]

REACTIONS (1)
  - METASTASIS [None]
